FAERS Safety Report 16861595 (Version 1)
Quarter: 2019Q3

REPORT INFORMATION
  Report Type: Report from Study
  Country: None (occurrence: US)
  Receive Date: 20190927
  Receipt Date: 20190927
  Transmission Date: 20191005
  Serious: Yes (Other)
  Sender: FDA-Public Use
  Company Number: US-ABBVIE-19K-163-2934994-00

PATIENT
  Age: 81 Year
  Sex: Male

DRUGS (1)
  1. HUMIRA [Suspect]
     Active Substance: ADALIMUMAB
     Indication: CROHN^S DISEASE
     Route: 058

REACTIONS (5)
  - Blood pressure abnormal [Unknown]
  - Post procedural haemorrhage [Unknown]
  - Diarrhoea [Unknown]
  - Somnolence [Unknown]
  - Constipation [Unknown]

NARRATIVE: CASE EVENT DATE: 201803
